FAERS Safety Report 9332643 (Version 1)
Quarter: 2013Q2

REPORT INFORMATION
  Report Type: Spontaneous
  Country: ES (occurrence: None)
  Receive Date: 20130603
  Receipt Date: 20130603
  Transmission Date: 20140414
  Serious: Yes (Other)
  Sender: FDA-Public Use
  Company Number: ES-022250

PATIENT
  Sex: 0

DRUGS (6)
  1. BUSULFAN [Suspect]
     Indication: PROPHYLAXIS AGAINST TRANSPLANT REJECTION
  2. CYCLOPHOSPHAMIDE [Suspect]
     Indication: PROPHYLAXIS AGAINST TRANSPLANT REJECTION
  3. CLONAZEPAM [Concomitant]
  4. MESNA [Concomitant]
  5. SULFAMETHOXAZOLE [Concomitant]
  6. URSODIOL [Concomitant]

REACTIONS (1)
  - Mucosal inflammation [None]
